FAERS Safety Report 15137109 (Version 1)
Quarter: 2018Q3

REPORT INFORMATION
  Report Type: Spontaneous
  Country: US (occurrence: US)
  Receive Date: 20180712
  Receipt Date: 20180712
  Transmission Date: 20181010
  Serious: No
  Sender: FDA-Public Use
  Company Number: US-FOUNDATIONCONSUMERHC-2018-US-009265

PATIENT
  Age: 18 Year
  Sex: Female
  Weight: 106.14 kg

DRUGS (8)
  1. PLAN B ONE?STEP [Suspect]
     Active Substance: LEVONORGESTREL
     Indication: POST COITAL CONTRACEPTION
     Dosage: 1.5MG
     Route: 048
     Dates: start: 20180601, end: 20180601
  2. ALBUTEROL INHALER/ NEBULIZER [Concomitant]
  3. UNSPECIFIED ALLERGY PILLS [Concomitant]
  4. ALBUTEROL NEBULIZER [Concomitant]
     Active Substance: ALBUTEROL
     Route: 055
  5. ALBUTEROL INHALER [Concomitant]
     Active Substance: ALBUTEROL
     Route: 055
  6. IRON PILLS [Concomitant]
     Active Substance: IRON
  7. IRON SUPPLEMENT [Concomitant]
     Active Substance: IRON
     Route: 048
  8. ALLERGY MEDICATION [Concomitant]
     Active Substance: DIPHENHYDRAMINE HYDROCHLORIDE
     Route: 048

REACTIONS (1)
  - Abdominal discomfort [Not Recovered/Not Resolved]

NARRATIVE: CASE EVENT DATE: 20180601
